FAERS Safety Report 5510367-9 (Version None)
Quarter: 2007Q4

REPORT INFORMATION
  Report Type: 
  Country: None (occurrence: None)
  Receive Date: 20071108
  Receipt Date: 20071031
  Transmission Date: 20080405
  Serious: Yes (Other)
  Sender: FDA-Public Use
  Company Number: US-PFIZER INC-2006153166

PATIENT
  Sex: Female
  Weight: 133.8 kg

DRUGS (3)
  1. CELEBREX [Suspect]
     Indication: ARTHRITIS
     Route: 048
  2. BEXTRA [Suspect]
     Indication: ARTHRITIS
     Route: 048
     Dates: start: 20020101
  3. VIOXX [Suspect]
     Route: 048

REACTIONS (3)
  - ARRHYTHMIA [None]
  - DIZZINESS [None]
  - HYPERTENSION [None]
